FAERS Safety Report 7131508 (Version 24)
Quarter: 2014Q1

REPORT INFORMATION
  Report Type: Spontaneous
  Country: US (occurrence: US)
  Receive Date: 20090925
  Receipt Date: 20140210
  Transmission Date: 20141002
  Serious: Yes (Hospitalization, Other)
  Sender: FDA-Public Use
  Company Number: PHEH2009US11084

PATIENT
  Sex: Female

DRUGS (47)
  1. AREDIA [Suspect]
     Indication: BREAST CANCER RECURRENT
     Dosage: 90 MG, QMO
     Route: 042
     Dates: end: 20080917
  2. ZOMETA [Suspect]
     Indication: METASTASES TO BONE
     Dosage: 4 MG, QMO
     Route: 042
     Dates: start: 200203, end: 20081126
  3. NASACORT AQ [Suspect]
  4. CELEBREX [Concomitant]
     Indication: ARTHRITIS
  5. CELEXA [Concomitant]
     Indication: DEPRESSION
  6. AMBIEN [Concomitant]
  7. MACROBID [Concomitant]
  8. XELODA [Concomitant]
  9. ALLEGRA-D [Concomitant]
  10. ABILIFY [Concomitant]
     Dosage: 2 MG, QHS
  11. MECLIZINE [Concomitant]
     Dosage: 25 MG, TID, PRN
  12. NEXIUM [Concomitant]
     Dosage: 40 MG, QD
  13. COUMADIN [Concomitant]
     Dosage: 3 MG, QD
  14. CRESTOR [Concomitant]
     Dosage: 10 MG, QD
  15. NASACORT [Concomitant]
  16. VICODIN [Concomitant]
  17. ZEBUTAL [Concomitant]
  18. FENTANYL [Concomitant]
     Dosage: 225 UG, QOD
  19. IMITREX [Concomitant]
     Dosage: 100 MG, PRN
  20. LORAZEPAM [Concomitant]
  21. AMOXICILLIN [Concomitant]
     Dosage: 875 MG, BID
  22. FASLODEX [Concomitant]
  23. ALLEGRA [Concomitant]
  24. PERIDEX [Concomitant]
  25. TAMOXIFEN [Concomitant]
  26. ANZEMET [Concomitant]
  27. HALOTUSSIN [Concomitant]
  28. MEGACE [Concomitant]
  29. NEXIUM                             /01479302/ [Concomitant]
  30. FUROSEMIDE [Concomitant]
  31. WARFARIN [Concomitant]
  32. ZOLPIDEM [Concomitant]
  33. RADIATION [Concomitant]
  34. METROGEL [Concomitant]
  35. TOPROL XL [Concomitant]
  36. CHEMOTHERAPEUTICS [Concomitant]
  37. ZOFRAN [Concomitant]
  38. CYCLOPHOSPHAMIDE [Concomitant]
  39. CLINDAMYCIN [Concomitant]
  40. SILVADENE [Concomitant]
  41. ADRIAMYCIN [Concomitant]
  42. CYTOXAN [Concomitant]
  43. PRILOSEC [Concomitant]
     Dosage: 20 MG, UNK
  44. XANAX [Concomitant]
     Dosage: 0.25 MG, TID
  45. DEXAMETHASONE [Concomitant]
     Dosage: 20 MG, UNK
  46. HEPARIN SODIUM [Concomitant]
  47. ALPRAZOLAM [Concomitant]
     Dosage: 0.25 MG, UNK

REACTIONS (133)
  - Haemorrhage [Unknown]
  - Coma [Unknown]
  - Small intestinal obstruction [Recovered/Resolved]
  - Osteonecrosis of jaw [Unknown]
  - Injury [Unknown]
  - Pain [Unknown]
  - Anxiety [Unknown]
  - Anhedonia [Unknown]
  - Pulmonary thrombosis [Unknown]
  - Cardiac murmur [Unknown]
  - Dental caries [Unknown]
  - Lower limb fracture [Unknown]
  - Arthritis [Unknown]
  - Depression [Unknown]
  - Migraine [Unknown]
  - Urinary tract infection [Unknown]
  - Hiatus hernia [Unknown]
  - Sleep apnoea syndrome [Unknown]
  - Cardiac failure congestive [Unknown]
  - Tachycardia [Unknown]
  - Tooth fracture [Unknown]
  - Tooth loss [Unknown]
  - Oral cavity fistula [Unknown]
  - Metastases to lymph nodes [Unknown]
  - Road traffic accident [Unknown]
  - Retroperitoneal haemorrhage [Unknown]
  - Lymphadenopathy mediastinal [Unknown]
  - Hilar lymphadenopathy [Unknown]
  - Cluster headache [Unknown]
  - Deep vein thrombosis [Unknown]
  - Pulmonary embolism [Unknown]
  - Acute myocardial infarction [Unknown]
  - Atrial fibrillation [Unknown]
  - Rosacea [Unknown]
  - Meniere^s disease [Unknown]
  - Impaired healing [Unknown]
  - Tooth infection [Unknown]
  - Pericardial effusion malignant [Unknown]
  - Cardiomyopathy [Recovered/Resolved]
  - Heart rate irregular [Unknown]
  - Hypertension [Unknown]
  - Gastrooesophageal reflux disease [Unknown]
  - Basal cell carcinoma [Unknown]
  - Gingival disorder [Unknown]
  - Second primary malignancy [Unknown]
  - Exposed bone in jaw [Unknown]
  - Primary sequestrum [Unknown]
  - Herpes simplex [Recovered/Resolved]
  - Macrocytosis [Unknown]
  - Age-related macular degeneration [Unknown]
  - Vulvovaginal mycotic infection [Recovered/Resolved]
  - Neuropathy peripheral [Unknown]
  - Dental plaque [Unknown]
  - Hepatic cyst [Unknown]
  - Haemangioma [Unknown]
  - Oral pain [Unknown]
  - Dyspnoea [Unknown]
  - Pleural effusion [Unknown]
  - Stomatitis [Unknown]
  - Nerve injury [Unknown]
  - Oral candidiasis [Unknown]
  - Cellulitis [Recovered/Resolved]
  - Back pain [Unknown]
  - Left ventricular dysfunction [Unknown]
  - Rib fracture [Unknown]
  - Musculoskeletal chest pain [Unknown]
  - Teratoma [Unknown]
  - Pulmonary mass [Unknown]
  - Myocardial ischaemia [Unknown]
  - Bronchitis [Unknown]
  - Pneumonia [Unknown]
  - Kidney infection [Unknown]
  - Cystitis [Unknown]
  - Spondylitis [Unknown]
  - Neck pain [Recovering/Resolving]
  - Concussion [Unknown]
  - Ventricular extrasystoles [Unknown]
  - Obesity [Unknown]
  - Arthralgia [Unknown]
  - Hyperlipidaemia [Unknown]
  - Tricuspid valve incompetence [Unknown]
  - Cervicobrachial syndrome [Unknown]
  - Myofascitis [Unknown]
  - Pulmonary hypertension [Unknown]
  - Exostosis [Unknown]
  - Gait disturbance [Unknown]
  - Ileus paralytic [Unknown]
  - Toothache [Unknown]
  - Anisometropia [Unknown]
  - Haemorrhoids [Unknown]
  - Soft tissue cancer [Unknown]
  - Hip fracture [Unknown]
  - Pain in jaw [Unknown]
  - Vitreous floaters [Unknown]
  - Upper respiratory tract infection [Unknown]
  - Pharyngitis [Unknown]
  - Skin mass [Unknown]
  - Discomfort [Unknown]
  - Gingival bleeding [Unknown]
  - Osteolysis [Unknown]
  - Raynaud^s phenomenon [Unknown]
  - Candida infection [Unknown]
  - Hypoacusis [Unknown]
  - Somnambulism [Unknown]
  - Tooth abscess [Unknown]
  - Osteomyelitis [Unknown]
  - Spinal osteoarthritis [Unknown]
  - Intervertebral disc protrusion [Unknown]
  - Torticollis [Unknown]
  - Metastases to central nervous system [Unknown]
  - Osteopenia [Unknown]
  - Osteoporosis [Unknown]
  - Pleural fibrosis [Unknown]
  - Skin ulcer [Unknown]
  - Left atrial dilatation [Unknown]
  - Aortic valve incompetence [Unknown]
  - Influenza like illness [Unknown]
  - Asthma [Unknown]
  - Dysgeusia [Unknown]
  - Pollakiuria [Unknown]
  - Hypersomnia [Unknown]
  - Wound [Unknown]
  - Bone pain [Unknown]
  - Urinary incontinence [Unknown]
  - Pain in extremity [Unknown]
  - Arteriosclerosis coronary artery [Unknown]
  - Aortic calcification [Unknown]
  - Stress fracture [Unknown]
  - Cataract [Unknown]
  - Vision blurred [Unknown]
  - Blepharitis [Unknown]
  - Venous insufficiency [Unknown]
  - Dysphagia [Unknown]
